FAERS Safety Report 6062847-8 (Version None)
Quarter: 2009Q1

REPORT INFORMATION
  Report Type: 
  Country: None (occurrence: None)
  Receive Date: 20090129
  Receipt Date: 20090113
  Transmission Date: 20090719
  Serious: Yes (Death)
  Sender: FDA-Public Use
  Company Number: 000170

PATIENT
  Sex: Female

DRUGS (4)
  1. LACOSAMIDE [Suspect]
     Indication: EPILEPSY
     Dosage: 100 MG BID ORAL
     Route: 048
     Dates: start: 20081001, end: 20081201
  2. KEPPRA [Suspect]
     Indication: EPILEPSY
     Dosage: 500 MG 7X/DAY ORAL
     Route: 048
     Dates: start: 20061201, end: 20081201
  3. APYDAN /00596701/ (APYDAN EXTENT) (NOT SPECIFIED) [Suspect]
     Indication: EPILEPSY
     Dosage: 300 MG QID ORAL
     Route: 048
     Dates: start: 20040101, end: 20081201
  4. ERGENYL CHRONO (ERGENYL CHRONO) [Suspect]
     Indication: EPILEPSY
     Dosage: 300 MG 6X/DAY ORAL
     Route: 048
     Dates: start: 20040101, end: 20081201

REACTIONS (2)
  - BREAST CANCER METASTATIC [None]
  - HEPATIC CANCER METASTATIC [None]
